FAERS Safety Report 12618799 (Version 2)
Quarter: 2016Q3

REPORT INFORMATION
  Report Type: Spontaneous
  Country: US (occurrence: US)
  Receive Date: 20160803
  Receipt Date: 20160830
  Transmission Date: 20161109
  Serious: Yes (Other)
  Sender: FDA-Public Use
  Company Number: US-DRREDDYS-USA/USA/16/0081904

PATIENT
  Age: 68 Year
  Sex: Female

DRUGS (1)
  1. HABITROL [Suspect]
     Active Substance: NICOTINE
     Indication: SMOKING CESSATION THERAPY
     Route: 061
     Dates: start: 201607

REACTIONS (4)
  - Product quality issue [Unknown]
  - Viral load increased [Unknown]
  - Treatment noncompliance [Unknown]
  - Nicotine dependence [Unknown]
